FAERS Safety Report 7065307-0 (Version None)
Quarter: 2010Q4

REPORT INFORMATION
  Report Type: 
  Country: None (occurrence: None)
  Receive Date: 20101027
  Receipt Date: 20101018
  Transmission Date: 20110411
  Serious: Yes (Hospitalization)
  Sender: FDA-Public Use
  Company Number: JP-MERCK-1009USA03347

PATIENT
  Age: 37 Year
  Sex: Female

DRUGS (1)
  1. PRIMAXIN [Suspect]
     Indication: APPENDICITIS
     Route: 042
     Dates: start: 20100908

REACTIONS (1)
  - HEPATIC FUNCTION ABNORMAL [None]
